FAERS Safety Report 17003288 (Version 1)
Quarter: 2019Q4

REPORT INFORMATION
  Report Type: Spontaneous
  Country: US (occurrence: US)
  Receive Date: 20191107
  Receipt Date: 20191107
  Transmission Date: 20200122
  Serious: No
  Sender: FDA-Public Use
  Company Number: US-ALLERGAN-1924325US

PATIENT
  Sex: Female

DRUGS (1)
  1. ALPHAGAN P [Suspect]
     Active Substance: BRIMONIDINE TARTRATE
     Indication: GLAUCOMA
     Dosage: 4 GTT, BID (AFTERNOON AND NIGHT)
     Route: 047
     Dates: start: 2017

REACTIONS (5)
  - Ocular hyperaemia [Recovered/Resolved]
  - Visual field tests abnormal [Unknown]
  - Conjunctivitis [Unknown]
  - Incorrect dose administered [Unknown]
  - Intraocular pressure increased [Recovering/Resolving]

NARRATIVE: CASE EVENT DATE: 2017
